FAERS Safety Report 4446179-7 (Version None)
Quarter: 2004Q3

REPORT INFORMATION
  Report Type: 
  Country: None (occurrence: None)
  Receive Date: 20040908
  Receipt Date: 20031209
  Transmission Date: 20050211
  Serious: Yes (Hospitalization)
  Sender: FDA-Public Use
  Company Number: JP-MERCK-0312USA01272

PATIENT
  Age: 56 Year
  Sex: Male

DRUGS (4)
  1. AMOXAPINE [Concomitant]
     Indication: DEPRESSION
     Route: 048
     Dates: start: 20030310, end: 20030825
  2. PEPCID RPD [Suspect]
     Indication: GASTRITIS
     Route: 048
     Dates: start: 20030208, end: 20030819
  3. VALTREX [Concomitant]
     Route: 065
     Dates: start: 20030816, end: 20030818
  4. ZONISAMIDE [Concomitant]
     Indication: EPILEPSY
     Route: 048
     Dates: start: 20021030

REACTIONS (5)
  - ALANINE AMINOTRANSFERASE INCREASED [None]
  - ASPARTATE AMINOTRANSFERASE INCREASED [None]
  - BLOOD CREATINE PHOSPHOKINASE INCREASED [None]
  - EPILEPSY [None]
  - HERPES ZOSTER [None]
